FAERS Safety Report 6790505-0 (Version None)
Quarter: 2010Q2

REPORT INFORMATION
  Report Type: 
  Country: None (occurrence: None)
  Receive Date: 20100624
  Receipt Date: 20100621
  Transmission Date: 20101027
  Serious: Yes (Life-Threatening)
  Sender: FDA-Public Use
  Company Number: CA-ASTRAZENECA-2010SE28929

PATIENT
  Age: 85 Year
  Sex: Female
  Weight: 52 kg

DRUGS (17)
  1. SEROQUEL [Suspect]
     Route: 048
  2. HALDOL [Suspect]
     Dosage: 0.75 MG TOTAL
     Route: 048
  3. ALTACE [Concomitant]
     Route: 048
  4. CALCIUM CARBONATE [Concomitant]
     Route: 048
  5. CELEXA [Concomitant]
     Route: 048
  6. COLACE [Concomitant]
     Route: 048
  7. DILAUDID [Concomitant]
     Route: 048
  8. FOLIC ACID [Concomitant]
     Route: 048
  9. GRAVOL TAB [Concomitant]
     Route: 048
  10. HEPARIN SODIUM [Concomitant]
     Route: 058
  11. IRON [Concomitant]
     Route: 048
  12. NORVASC [Concomitant]
     Route: 048
  13. PANTOPRAZOLE [Concomitant]
     Route: 048
  14. PLAVIX [Concomitant]
     Route: 048
  15. SENOKOT [Concomitant]
     Route: 048
  16. VITAMIN B-12 [Concomitant]
     Route: 048
  17. VITAMIN D [Concomitant]
     Route: 048

REACTIONS (2)
  - ELECTROCARDIOGRAM QT PROLONGED [None]
  - HYPOKALAEMIA [None]
